FAERS Safety Report 12099028 (Version 1)
Quarter: 2016Q1

REPORT INFORMATION
  Report Type: Spontaneous
  Country: US (occurrence: US)
  Receive Date: 20160222
  Receipt Date: 20160222
  Transmission Date: 20160526
  Serious: No
  Sender: FDA-Public Use
  Company Number: US-BAYER-2016-033726

PATIENT
  Age: 55 Year
  Sex: Female
  Weight: 95.24 kg

DRUGS (1)
  1. ALEVE [Suspect]
     Active Substance: NAPROXEN SODIUM
     Indication: ARTHROPATHY
     Dosage: 1 DF, Q8HR

REACTIONS (3)
  - Product use issue [None]
  - Therapeutic response unexpected [None]
  - Drug effect incomplete [None]
